FAERS Safety Report 21996424 (Version 1)
Quarter: 2023Q1

REPORT INFORMATION
  Report Type: Report from Study
  Country: LT (occurrence: LT)
  Receive Date: 20230215
  Receipt Date: 20230215
  Transmission Date: 20230417
  Serious: Yes (Hospitalization, Other)
  Sender: FDA-Public Use
  Company Number: LT-SOCIETAL CDMO GAINESVILLE, LLC-SOC-2023-000003

PATIENT
  Age: 27 Year
  Sex: Male

DRUGS (3)
  1. VERAPAMIL HYDROCHLORIDE [Suspect]
     Active Substance: VERAPAMIL HYDROCHLORIDE
     Indication: Acute myocardial infarction
     Dosage: 2.5 MILLIGRAM, ONE TIME DOSE
     Route: 022
  2. VERAPAMIL HYDROCHLORIDE [Suspect]
     Active Substance: VERAPAMIL HYDROCHLORIDE
     Dosage: 80 MILLIGRAM, QD
     Route: 065
  3. VERAPAMIL HYDROCHLORIDE [Suspect]
     Active Substance: VERAPAMIL HYDROCHLORIDE
     Dosage: 80 MILLIGRAM, BID
     Route: 065

REACTIONS (1)
  - Acute myocardial infarction [Recovered/Resolved]
